FAERS Safety Report 5135369-6 (Version None)
Quarter: 2006Q4

REPORT INFORMATION
  Report Type: 
  Country: None (occurrence: None)
  Receive Date: 20061026
  Receipt Date: 20040825
  Transmission Date: 20070319
  Serious: Yes (Hospitalization, Disabling, Other)
  Sender: FDA-Public Use
  Company Number: US-BRISTOL-MYERS SQUIBB COMPANY-12682761

PATIENT
  Age: 60 Year
  Sex: Male

DRUGS (15)
  1. ABATACEPT [Suspect]
     Route: 042
     Dates: start: 20030909
  2. METHOTREXATE SODIUM [Suspect]
     Indication: RHEUMATOID ARTHRITIS
     Route: 058
     Dates: start: 20010329, end: 20031112
  3. CYTOXAN [Suspect]
     Dates: start: 20040915
  4. INFLIXIMAB [Suspect]
     Dates: start: 20020328, end: 20021126
  5. KINERET [Suspect]
     Dates: end: 20010328
  6. ARAVA [Suspect]
     Indication: RHEUMATOID ARTHRITIS
     Route: 048
     Dates: start: 20040615
  7. ETANERCEPT [Suspect]
  8. VINCRISTINE [Suspect]
     Dates: start: 20040915
  9. PREDNISONE TAB [Suspect]
     Indication: RHEUMATOID ARTHRITIS
     Dosage: DOSE VARIED FROM 7 MG TO 10 MG
     Route: 048
     Dates: start: 20021002
  10. ADRIAMYCIN PFS [Suspect]
     Dates: start: 20040915
  11. CALCIUM CITRATE [Concomitant]
     Indication: OSTEOPENIA
     Route: 048
     Dates: start: 19990101
  12. HYDROCHLOROTHIAZIDE [Concomitant]
     Indication: HYPERTENSION
     Route: 048
     Dates: start: 20030618
  13. LORTAB [Concomitant]
     Indication: RHEUMATOID ARTHRITIS
     Dosage: DOSAGE FORM = 7.5/500 TABLET; 1 TID PRN
     Route: 048
     Dates: start: 20040615
  14. POTASSIUM CHLORIDE [Concomitant]
     Indication: HYPERTENSION
     Route: 048
     Dates: start: 20040615
  15. TYLENOL W/ CODEINE NO. 3 [Concomitant]
     Indication: PAIN
     Dosage: 1-2 TABS
     Route: 048
     Dates: start: 20011023

REACTIONS (5)
  - DEEP VEIN THROMBOSIS [None]
  - NEUTROPENIA [None]
  - STAPHYLOCOCCAL INFECTION [None]
  - SUBACUTE ENDOCARDITIS [None]
  - T-CELL LYMPHOMA [None]
